FAERS Safety Report 9759544 (Version 1)
Quarter: 2013Q4

REPORT INFORMATION
  Report Type: Spontaneous
  Country: US (occurrence: US)
  Receive Date: 20131216
  Receipt Date: 20131216
  Transmission Date: 20140711
  Serious: No
  Sender: FDA-Public Use
  Company Number: US-GILEAD-2010-0028030

PATIENT
  Sex: Female
  Weight: 65.77 kg

DRUGS (23)
  1. LETAIRIS [Suspect]
     Indication: PULMONARY ARTERIAL HYPERTENSION
     Route: 048
     Dates: start: 20100129
  2. COUMADIN [Concomitant]
  3. PLAVIX [Concomitant]
  4. DIAMOX [Concomitant]
  5. NORVASC [Concomitant]
  6. CLONIDINE [Concomitant]
  7. TEKTURNA [Concomitant]
  8. AVAPRO [Concomitant]
  9. NITROGLYCERINE [Concomitant]
  10. SOTALOL [Concomitant]
  11. ZOCOR [Concomitant]
  12. ADVAIR [Concomitant]
  13. LEVAQUIN [Concomitant]
  14. HUMULIN R [Concomitant]
  15. GLIPIZIDE [Concomitant]
  16. PROTONIX [Concomitant]
  17. NEXIUM [Concomitant]
  18. CLOTRIMAZOLE/NETAMETHASONE CREAM [Concomitant]
  19. TYLENOL NO.2 [Concomitant]
  20. LYRICA [Concomitant]
  21. NEURONTIN [Concomitant]
  22. NEVANAC [Concomitant]
  23. VICODIN [Concomitant]

REACTIONS (1)
  - Dyspnoea [Unknown]
